FAERS Safety Report 5001600-0 (Version None)
Quarter: 2006Q2

REPORT INFORMATION
  Report Type: 
  Country: None (occurrence: None)
  Receive Date: 20060515
  Receipt Date: 20060503
  Transmission Date: 20061013
  Serious: Yes (Hospitalization, Other)
  Sender: FDA-Public Use
  Company Number: PHBS2006BR06795

PATIENT
  Age: 75 Year
  Sex: Female
  Weight: 78 kg

DRUGS (4)
  1. CODATEN [Suspect]
     Indication: MUSCLE CONTRACTURE
     Dosage: 1 DF, ONCE/SINGLE
     Route: 048
     Dates: start: 20060428, end: 20060428
  2. TOFRANIL [Suspect]
     Indication: MUSCLE CONTRACTURE
     Dosage: 25 MG, ONCE/SINGLE
     Route: 048
     Dates: start: 20060428, end: 20060428
  3. TRILEPTAL [Concomitant]
     Indication: MUSCLE CONTRACTURE
     Dosage: UNK, BID
     Route: 048
  4. HIZAAR [Concomitant]
     Indication: HYPERTENSION
     Dosage: 0.5 TAB/DAY
     Route: 048

REACTIONS (7)
  - ABDOMINAL PAIN UPPER [None]
  - BLOOD PRESSURE INCREASED [None]
  - COLD SWEAT [None]
  - LIVER DISORDER [None]
  - MALAISE [None]
  - RETCHING [None]
  - SWELLING [None]
